FAERS Safety Report 7303917-3 (Version None)
Quarter: 2011Q1

REPORT INFORMATION
  Report Type: 
  Country: None (occurrence: None)
  Receive Date: 20110221
  Receipt Date: 20110210
  Transmission Date: 20110831
  Serious: Yes (Other)
  Sender: FDA-Public Use
  Company Number: CO-BAYER-2011-013042

PATIENT
  Age: 29 Year
  Sex: Female
  Weight: 57 kg

DRUGS (1)
  1. MAGNEVIST [Suspect]
     Indication: NUCLEAR MAGNETIC RESONANCE IMAGING
     Dosage: 15 ML, ONCE
     Dates: start: 20110204, end: 20110204

REACTIONS (6)
  - HYPOTHERMIA [None]
  - PRURITUS [None]
  - DIZZINESS [None]
  - TACHYCARDIA [None]
  - HYPERTENSION [None]
  - VOMITING [None]
